FAERS Safety Report 4885968-1 (Version None)
Quarter: 2006Q1

REPORT INFORMATION
  Report Type: 
  Country: None (occurrence: None)
  Receive Date: 20060117
  Receipt Date: 20060106
  Transmission Date: 20060701
  Serious: Yes (Other)
  Sender: FDA-Public Use
  Company Number: 2005RR-01319

PATIENT
  Age: 81 Year
  Sex: Male

DRUGS (1)
  1. FLUOXETINE [Suspect]
     Indication: ANXIETY
     Dosage: 20 MG, QD
     Dates: start: 20040101, end: 20051115

REACTIONS (1)
  - TRANSIENT ISCHAEMIC ATTACK [None]
